FAERS Safety Report 8300687-7 (Version None)
Quarter: 2012Q2

REPORT INFORMATION
  Report Type: 
  Country: None (occurrence: None)
  Receive Date: 20120420
  Receipt Date: 20120410
  Transmission Date: 20120825
  Serious: Yes (Other)
  Sender: FDA-Public Use
  Company Number: PHHY2012KR016366

PATIENT
  Sex: Male
  Weight: 64 kg

DRUGS (3)
  1. EXJADE [Suspect]
     Indication: MYELODYSPLASTIC SYNDROME
  2. EXJADE [Suspect]
     Indication: IRON OVERLOAD
     Dosage: UNK UKN, UNK
     Route: 048
     Dates: start: 20100426
  3. SANDIMMUNE [Concomitant]
     Dosage: UNK UKN, UNK

REACTIONS (3)
  - RESPIRATORY FAILURE [None]
  - JOINT DISLOCATION PATHOLOGICAL [None]
  - ARTHRALGIA [None]
